FAERS Safety Report 10149608 (Version 1)
Quarter: 2014Q2

REPORT INFORMATION
  Report Type: Spontaneous
  Country: US (occurrence: None)
  Receive Date: 20140501
  Receipt Date: 20140501
  Transmission Date: 20141212
  Serious: Yes (Hospitalization)
  Sender: FDA-Public Use
  Company Number: None

PATIENT
  Age: 66 Year
  Sex: Male

DRUGS (15)
  1. AMIDARONE [Suspect]
     Indication: ATRIAL FIBRILLATION
     Route: 048
     Dates: start: 20130813
  2. AMIODARONE [Concomitant]
  3. ASA [Concomitant]
  4. SULFAMETHOXAZOLE-TRIMETHOPRIM [Concomitant]
  5. CALCIUM CARBONATE [Concomitant]
  6. MYCOPHENOLATE [Concomitant]
  7. MULTIVITAMIN [Concomitant]
  8. INSULIN ASPART [Concomitant]
  9. LANSOPRAZOLE [Concomitant]
  10. PRAVASTATIN [Concomitant]
  11. PREDNISONE [Concomitant]
  12. TACROLIMUS [Concomitant]
  13. VENLAFAXINE [Concomitant]
  14. ZOLPIDEM [Concomitant]
  15. OXYCODONE [Concomitant]

REACTIONS (11)
  - Asthenia [None]
  - Hyperreflexia [None]
  - Dizziness [None]
  - Gait disturbance [None]
  - Fall [None]
  - Dizziness postural [None]
  - Tremor [None]
  - Urinary incontinence [None]
  - Hypotonia [None]
  - Cervical spinal stenosis [None]
  - Nervous system disorder [None]
